FAERS Safety Report 12855874 (Version 1)
Quarter: 2016Q4

REPORT INFORMATION
  Report Type: Spontaneous
  Country: RO (occurrence: None)
  Receive Date: 20161014
  Receipt Date: 20161014
  Transmission Date: 20170207
  Serious: Yes (Hospitalization)
  Sender: FDA-Public Use
  Company Number: RO2015K5264LIT

PATIENT
  Age: 63 Year
  Sex: Female

DRUGS (4)
  1. FENOFIBRATE. [Suspect]
     Active Substance: FENOFIBRATE
  2. ENALAPRIL GENERIC (ENALAPRIL) UNKNOWN [Suspect]
     Active Substance: ENALAPRIL
  3. METOPROLOL GENERIC (METOPROLOL) [Suspect]
     Active Substance: METOPROLOL
  4. FELODIPINE. [Suspect]
     Active Substance: FELODIPINE

REACTIONS (9)
  - Coagulopathy [None]
  - Haematoma [None]
  - Skin necrosis [None]
  - Deep vein thrombosis [None]
  - Haemoglobin decreased [None]
  - Benign ovarian tumour [None]
  - Skin lesion [None]
  - Pyrexia [None]
  - Protein C increased [None]
